FAERS Safety Report 4450292-8 (Version None)
Quarter: 2004Q3

REPORT INFORMATION
  Report Type: 
  Country: None (occurrence: None)
  Receive Date: 20040914
  Receipt Date: 20040830
  Transmission Date: 20050211
  Serious: Yes (Hospitalization, Other)
  Sender: FDA-Public Use
  Company Number: 2004061145

PATIENT
  Age: 42 Year
  Sex: Male

DRUGS (1)
  1. LIPITOR [Suspect]
     Indication: HYPERLIPIDAEMIA
     Dosage: ORAL
     Route: 048
     Dates: start: 20031010, end: 20040709

REACTIONS (4)
  - COMA [None]
  - CONVULSION [None]
  - HAEMODIALYSIS [None]
  - RHABDOMYOLYSIS [None]
